FAERS Safety Report 15214996 (Version 2)
Quarter: 2018Q3

REPORT INFORMATION
  Report Type: Spontaneous
  Country: DE (occurrence: DE)
  Receive Date: 20180730
  Receipt Date: 20180731
  Transmission Date: 20181010
  Serious: Yes (Hospitalization, Other)
  Sender: FDA-Public Use
  Company Number: DE-PFIZER INC-2006049098

PATIENT
  Age: 40 Year
  Sex: Male

DRUGS (1)
  1. IBUPROFEN. [Suspect]
     Active Substance: IBUPROFEN
     Indication: MUSCULOSKELETAL PAIN
     Dosage: 400 MG 3 TIMES DAILY; TOTAL DOSE 25.2 G
     Route: 048
     Dates: start: 19991105, end: 19991126

REACTIONS (2)
  - Optic neuritis [Recovering/Resolving]
  - Ocular toxicity [Recovering/Resolving]

NARRATIVE: CASE EVENT DATE: 19991126
